FAERS Safety Report 13918904 (Version 1)
Quarter: 2017Q3

REPORT INFORMATION
  Report Type: Spontaneous
  Country: AR (occurrence: VE)
  Receive Date: 20170830
  Receipt Date: 20170830
  Transmission Date: 20171127
  Serious: Yes (Other)
  Sender: FDA-Public Use
  Company Number: AR-BIOGEN-2017BI00451644

PATIENT
  Sex: Male

DRUGS (1)
  1. TYSABRI [Suspect]
     Active Substance: NATALIZUMAB
     Indication: MULTIPLE SCLEROSIS
     Route: 042
     Dates: start: 201012, end: 2017

REACTIONS (3)
  - Osteoporotic fracture [Not Recovered/Not Resolved]
  - Muscular weakness [Unknown]
  - Diplopia [Unknown]

NARRATIVE: CASE EVENT DATE: 2011
